FAERS Safety Report 9203826 (Version 2)
Quarter: 2013Q2

REPORT INFORMATION
  Report Type: Spontaneous
  Country: FR (occurrence: FR)
  Receive Date: 20130402
  Receipt Date: 20130408
  Transmission Date: 20140414
  Serious: Yes (Hospitalization, Other)
  Sender: FDA-Public Use
  Company Number: FR-PFIZER INC-2013103540

PATIENT
  Age: 80 Year
  Sex: Male

DRUGS (6)
  1. CORDARONE [Suspect]
     Dosage: 200 MG, FIVE DAYS PER WEEK
     Route: 048
  2. ASPEGIC [Interacting]
     Indication: ARTHRITIS
     Dosage: UNK, AS NEEDED
     Route: 048
     Dates: start: 201210, end: 20121214
  3. PRADAXA [Interacting]
     Indication: ATRIAL FIBRILLATION
     Dosage: 2 DF, 1X/DAY
     Route: 048
     Dates: start: 20121126, end: 20121214
  4. RENITEC [Concomitant]
     Dosage: UNK
  5. LASILIX FAIBLE [Concomitant]
     Dosage: UNK
  6. TEMERIT [Concomitant]
     Dosage: UNK

REACTIONS (5)
  - Drug interaction [Recovered/Resolved]
  - Gastric ulcer [Recovered/Resolved]
  - Intestinal ulcer [Unknown]
  - Gastrointestinal haemorrhage [Recovered/Resolved]
  - Anaemia [Recovered/Resolved]
